FAERS Safety Report 17037901 (Version 1)
Quarter: 2019Q4

REPORT INFORMATION
  Report Type: Spontaneous
  Country: US (occurrence: US)
  Receive Date: 20191115
  Receipt Date: 20191115
  Transmission Date: 20200122
  Serious: No
  Sender: FDA-Public Use
  Company Number: US-BAYER-2019-185814

PATIENT
  Age: 69 Year
  Sex: Female
  Weight: 73 kg

DRUGS (12)
  1. BAYER LOW DOSE [Suspect]
     Active Substance: ASPIRIN
     Indication: CARDIAC DISORDER
  2. ATORVASTATIN [Concomitant]
     Active Substance: ATORVASTATIN
  3. PROBIOTIC [BIFIDOBACTERIUM LACTIS] [Concomitant]
     Active Substance: BIFIDOBACTERIUM ANIMALIS LACTIS
  4. FUROSEMIDE. [Concomitant]
     Active Substance: FUROSEMIDE
  5. CALCIUM MAGNESIUM [CALCIUM;MAGNESIUM] [Concomitant]
  6. OMEGA 3 KRILL OIL [Concomitant]
  7. MIRALAX [Suspect]
     Active Substance: POLYETHYLENE GLYCOL 3350
     Indication: CONSTIPATION
     Dosage: FILLED TO THE TOP OF THE WHITE CAP
     Dates: start: 20180818, end: 20191010
  8. MIRALAX [Suspect]
     Active Substance: POLYETHYLENE GLYCOL 3350
     Indication: CONSTIPATION
     Dosage: UNK
     Route: 048
     Dates: start: 20191011, end: 20191013
  9. METOPROLOL SUCCINATE. [Concomitant]
     Active Substance: METOPROLOL SUCCINATE
  10. LEVOTHYROXINE. [Concomitant]
     Active Substance: LEVOTHYROXINE
  11. VITAMINS NOS [Concomitant]
     Active Substance: VITAMINS
  12. GREEN TEA [CAMELLIA SINENSIS] [Concomitant]

REACTIONS (5)
  - Product use in unapproved indication [None]
  - Product odour abnormal [None]
  - Off label use [Unknown]
  - Product use in unapproved indication [Unknown]
  - Product taste abnormal [None]

NARRATIVE: CASE EVENT DATE: 20180818
